FAERS Safety Report 23772443 (Version 5)
Quarter: 2024Q3

REPORT INFORMATION
  Report Type: Spontaneous
  Country: DE (occurrence: DE)
  Receive Date: 20240423
  Receipt Date: 20240826
  Transmission Date: 20241017
  Serious: Yes (Hospitalization, Disabling, Other)
  Sender: NOVARTIS
  Company Number: DE-002147023-NVSC2024DE083831

PATIENT
  Age: 63 Year
  Sex: Female
  Weight: 80 kg

DRUGS (3)
  1. BEOVU [Suspect]
     Active Substance: BROLUCIZUMAB-DBLL
     Indication: Diabetic retinal oedema
     Dosage: UNK (SURGICAL DRUG ADMINISTRATION (IVOM) RIGHT EYE)
     Route: 031
     Dates: start: 20221006, end: 20221006
  2. BEOVU [Suspect]
     Active Substance: BROLUCIZUMAB-DBLL
     Dosage: UNK (SURGICAL DRUG ADMINISTRATION (IVOM)  RIGHT EYE)
     Route: 031
     Dates: start: 20221117, end: 20221117
  3. BEOVU [Suspect]
     Active Substance: BROLUCIZUMAB-DBLL
     Dosage: UNK (SURGICAL DRUG ADMINISTRATION (IVOM)  RIGHT EYE)
     Route: 031
     Dates: start: 20230110, end: 20230110

REACTIONS (4)
  - Vitreous haemorrhage [Recovered/Resolved]
  - Retinal detachment [Recovered/Resolved]
  - Retinal occlusive vasculitis [Not Recovered/Not Resolved]
  - Autoimmune disorder [Recovered/Resolved with Sequelae]

NARRATIVE: CASE EVENT DATE: 20230110
